FAERS Safety Report 4564153-7 (Version None)
Quarter: 2005Q1

REPORT INFORMATION
  Report Type: 
  Country: None (occurrence: None)
  Receive Date: 20050126
  Receipt Date: 20050113
  Transmission Date: 20050727
  Serious: Yes (Other)
  Sender: FDA-Public Use
  Company Number: 2005013904

PATIENT
  Age: 55 Year
  Sex: Male
  Weight: 80 kg

DRUGS (2)
  1. LUSTRAL (SERTRALINE) [Suspect]
     Indication: DEPRESSION
     Dosage: ORAL
     Route: 048
     Dates: start: 20020322, end: 20040706
  2. DIAZEPAM [Concomitant]

REACTIONS (2)
  - ATONIC URINARY BLADDER [None]
  - URINARY RETENTION [None]
